FAERS Safety Report 7803891-7 (Version None)
Quarter: 2011Q4

REPORT INFORMATION
  Report Type: 
  Country: None (occurrence: None)
  Receive Date: 20111010
  Receipt Date: 20111005
  Transmission Date: 20120403
  Serious: Yes (Other)
  Sender: FDA-Public Use
  Company Number: DE-PFIZER INC-2011237185

PATIENT
  Sex: Female

DRUGS (2)
  1. LYRICA [Suspect]
     Indication: BACK PAIN
     Dosage: 75 MG, 1X/DAY
  2. LYRICA [Suspect]
     Indication: PAIN IN EXTREMITY

REACTIONS (4)
  - EATING DISORDER [None]
  - FLUID INTAKE REDUCED [None]
  - FEELING ABNORMAL [None]
  - FATIGUE [None]
